FAERS Safety Report 8123895 (Version 2)
Quarter: 2014Q1

REPORT INFORMATION
  Report Type: Report from Study
  Country: US (occurrence: US)
  Receive Date: 20110907
  Receipt Date: 20140210
  Transmission Date: 20141002
  Serious: Yes (Hospitalization, Other)
  Sender: FDA-Public Use
  Company Number: PHHO2011US14384

PATIENT
  Age: 70 Year
  Sex: Male
  Weight: 78.1 kg

DRUGS (15)
  1. ICL670A [Suspect]
     Indication: MYELODYSPLASTIC SYNDROME
     Dosage: 1000 MG, QD
     Dates: start: 20080804, end: 20110116
  2. ASPIRIN [Concomitant]
     Indication: CORONARY ARTERY DISEASE
     Dosage: 81 MG, QD
     Route: 048
     Dates: start: 200203, end: 20110116
  3. COREG [Concomitant]
     Indication: CORONARY ARTERY DISEASE
     Dosage: 12.5 MG, BID
     Dates: start: 200203, end: 20110116
  4. PLAVIX [Concomitant]
     Indication: CORONARY ARTERY DISEASE
     Dosage: 75 MG, QD
     Route: 048
     Dates: start: 20100218, end: 20110116
  5. FISH OIL [Concomitant]
     Indication: SUPPLEMENTATION THERAPY
     Dosage: 1 CAP, QD
     Route: 048
     Dates: start: 2009, end: 20110116
  6. GABAPENTIN [Concomitant]
     Indication: PORPHYRIA ACUTE
     Dosage: 300 MG, UNK
     Route: 048
  7. GABAPENTIN [Concomitant]
     Dosage: 400 MG, UNK
     Route: 048
     Dates: end: 20110116
  8. MAGNESIUM [Concomitant]
     Indication: SUPPLEMENTATION THERAPY
     Dosage: 300 MG, QHS
     Route: 048
     Dates: start: 2010, end: 20110116
  9. MORPHINE [Concomitant]
     Indication: PORPHYRIA ACUTE
     Dosage: 30 MG, PRN
     Route: 048
     Dates: start: 20060501, end: 20110116
  10. MORPHINE [Concomitant]
     Indication: PAIN
  11. MULTIVITAMINS [Concomitant]
     Indication: SUPPLEMENTATION THERAPY
     Dosage: 1 DF, QD
     Route: 048
     Dates: end: 20110116
  12. NITROGLICERIN [Concomitant]
     Indication: ANGINA PECTORIS
     Dosage: 4 MG, PRN
     Dates: start: 200203, end: 20110116
  13. NITROGLICERIN [Concomitant]
     Indication: CORONARY ARTERY DISEASE
  14. SPIRONOLACTONE [Concomitant]
     Indication: PULMONARY OEDEMA
     Dosage: 25 MG, QD
     Route: 048
     Dates: start: 20090821, end: 20110116
  15. VITAMIN E [Concomitant]
     Indication: SUPPLEMENTATION THERAPY
     Dosage: 400 MG, QD
     Route: 048
     Dates: end: 20110116

REACTIONS (19)
  - Sepsis [Recovered/Resolved]
  - Pneumonia [Recovered/Resolved]
  - Pleural effusion [Unknown]
  - Dyspnoea [Recovered/Resolved]
  - Hypoxia [Recovered/Resolved]
  - Diabetes mellitus [Unknown]
  - Left ventricular hypertrophy [Unknown]
  - Mitral valve incompetence [Unknown]
  - Left atrial dilatation [Unknown]
  - Cardiomegaly [Unknown]
  - Aortic stenosis [Unknown]
  - Tricuspid valve incompetence [Unknown]
  - Syncope [Recovered/Resolved]
  - Alanine aminotransferase increased [Unknown]
  - Aspartate aminotransferase increased [Unknown]
  - Cough [Unknown]
  - Pruritus generalised [Unknown]
  - Night sweats [Unknown]
  - Oedema [Unknown]
